FAERS Safety Report 7247491-9 (Version None)
Quarter: 2011Q1

REPORT INFORMATION
  Report Type: 
  Country: None (occurrence: None)
  Receive Date: 20110127
  Receipt Date: 20110121
  Transmission Date: 20110831
  Serious: Yes (Life-Threatening)
  Sender: FDA-Public Use
  Company Number: BR-BRISTOL-MYERS SQUIBB COMPANY-15502404

PATIENT
  Age: 77 Year
  Sex: Female
  Weight: 56 kg

DRUGS (5)
  1. LISODREN TABS 500 MG [Suspect]
     Indication: HEPATIC NEOPLASM
     Dosage: INTERRUPTED ON NOV2010.ALSO TAKEN 5 TABS OF 500MG,3 TABS OF 500MG,(1.5MG PER DAY).RESUMED: JAN2011.
     Route: 048
     Dates: start: 20100601
  2. BENICAR [Concomitant]
  3. CADUET [Concomitant]
  4. CONCOR [Concomitant]
  5. METICORTEN [Concomitant]

REACTIONS (4)
  - NAUSEA [None]
  - CHOKING [None]
  - MALAISE [None]
  - ASPHYXIA [None]
